FAERS Safety Report 6451037-2 (Version None)
Quarter: 2009Q4

REPORT INFORMATION
  Report Type: 
  Country: None (occurrence: None)
  Receive Date: 20091123
  Receipt Date: 20091113
  Transmission Date: 20100525
  Serious: Yes (Other)
  Sender: FDA-Public Use
  Company Number: US-SANOFI-AVENTIS-2009SA002355

PATIENT

DRUGS (1)
  1. TAXOTERE [Suspect]
     Route: 065

REACTIONS (1)
  - MACULAR OEDEMA [None]
